FAERS Safety Report 15250160 (Version 2)
Quarter: 2019Q2

REPORT INFORMATION
  Report Type: Spontaneous
  Country: AU (occurrence: AU)
  Receive Date: 20180807
  Receipt Date: 20190429
  Transmission Date: 20190711
  Serious: Yes (Other)
  Sender: FDA-Public Use
  Company Number: AU-MYLANLABS-2018M1059095

PATIENT
  Age: 26 Year
  Sex: Male

DRUGS (2)
  1. CABERGOLINE. [Suspect]
     Active Substance: CABERGOLINE
     Indication: PROLACTIN-PRODUCING PITUITARY TUMOUR
     Dosage: 0.5 MG TWO TIMES IN A WEEK; SUBSEQUENTLY, THE DOSE WAS INCREASED
     Route: 065
  2. CABERGOLINE. [Suspect]
     Active Substance: CABERGOLINE
     Dosage: 0.5 MG THREE TIMES A DAY
     Route: 065

REACTIONS (3)
  - Pituitary apoplexy [Recovering/Resolving]
  - Haematoma [Recovering/Resolving]
  - Blindness [Unknown]
